FAERS Safety Report 5722171-7 (Version None)
Quarter: 2008Q2

REPORT INFORMATION
  Report Type: 
  Country: None (occurrence: None)
  Receive Date: 20080429
  Receipt Date: 20080417
  Transmission Date: 20081010
  Serious: Yes (Other)
  Sender: FDA-Public Use
  Company Number: US-PFIZER INC-2008036553

PATIENT
  Sex: Female
  Weight: 63.636 kg

DRUGS (14)
  1. CHANTIX [Suspect]
     Indication: SMOKING CESSATION THERAPY
  2. LISINOPRIL [Concomitant]
  3. KLONOPIN [Concomitant]
  4. MYSOLINE [Concomitant]
     Indication: TREMOR
  5. REGLAN [Concomitant]
  6. SYNTHROID [Concomitant]
  7. LEXAPRO [Concomitant]
  8. ZOCOR [Concomitant]
  9. COLACE [Concomitant]
  10. MIRALAX [Concomitant]
  11. VESICARE [Concomitant]
  12. PROCARDIA [Concomitant]
  13. ALEVE [Concomitant]
  14. HYDROCODONE BITARTRATE + ACETAMINOPHEN [Concomitant]

REACTIONS (2)
  - BLOOD GLUCOSE DECREASED [None]
  - BLOOD GLUCOSE INCREASED [None]
